FAERS Safety Report 8779538 (Version 1)
Quarter: 2012Q4

REPORT INFORMATION
  Report Type: 
  Country: TH (occurrence: TH)
  Receive Date: 20120912
  Receipt Date: 20120912
  Transmission Date: 20130627
  Serious: Yes (Life-Threatening)
  Sender: FDA-Public Use
  Company Number: TH-SANOFI-AVENTIS-2012SA064962

PATIENT
  Age: 36 Year
  Sex: Female

DRUGS (1)
  1. TAXOTERE [Suspect]
     Indication: DRUG USE FOR UNKNOWN INDICATION
     Route: 042
     Dates: start: 20100804, end: 20100804

REACTIONS (1)
  - Choking [Recovered/Resolved]
